FAERS Safety Report 19071157 (Version 4)
Quarter: 2021Q2

REPORT INFORMATION
  Report Type: Report from Study
  Country: CA (occurrence: CA)
  Receive Date: 20210330
  Receipt Date: 20210617
  Transmission Date: 20210717
  Serious: Yes (Other)
  Sender: FDA-Public Use
  Company Number: CA-JNJFOC-20210346074

PATIENT
  Age: 17 Year
  Sex: Male

DRUGS (1)
  1. REMICADE [Suspect]
     Active Substance: INFLIXIMAB
     Indication: CROHN^S DISEASE
     Dosage: ON 26?APR?2021, THE PATIENT RECEIVED 44TH INFUSION OF 400 MG AND PARTIAL HARVEY?BRADSHAW WAS COMPLET
     Route: 042
     Dates: start: 20170131

REACTIONS (4)
  - Visual impairment [Recovered/Resolved]
  - Product use issue [Unknown]
  - Off label use [Unknown]
  - Crohn^s disease [Recovering/Resolving]

NARRATIVE: CASE EVENT DATE: 20170131
